FAERS Safety Report 4944875-6 (Version None)
Quarter: 2006Q1

REPORT INFORMATION
  Report Type: 
  Country: None (occurrence: None)
  Receive Date: 20060315
  Receipt Date: 20060306
  Transmission Date: 20060701
  Serious: Yes (Hospitalization)
  Sender: FDA-Public Use
  Company Number: US-MERCK-0603USA01098

PATIENT
  Sex: Female
  Weight: 75 kg

DRUGS (4)
  1. KLONOPIN [Concomitant]
     Route: 065
  2. WELLBUTRIN [Concomitant]
     Route: 065
  3. VIOXX [Suspect]
     Indication: MYALGIA
     Route: 048
  4. VIOXX [Suspect]
     Route: 048

REACTIONS (7)
  - ANGINA PECTORIS [None]
  - ARRHYTHMIA [None]
  - ASTHMA [None]
  - CHEST PAIN [None]
  - EMOTIONAL DISORDER [None]
  - HYPERTENSION [None]
  - PRESCRIBED OVERDOSE [None]
